FAERS Safety Report 5186041-8 (Version None)
Quarter: 2006Q4

REPORT INFORMATION
  Report Type: 
  Country: None (occurrence: None)
  Receive Date: 20061220
  Receipt Date: 20061017
  Transmission Date: 20070319
  Serious: No
  Sender: FDA-Public Use
  Company Number: US-GLAXOSMITHKLINE-A0623846A

PATIENT
  Age: 40 Year
  Sex: Male

DRUGS (1)
  1. NICODERM CQ [Suspect]
     Route: 062
     Dates: end: 20061016

REACTIONS (7)
  - ABDOMINAL PAIN UPPER [None]
  - DIARRHOEA [None]
  - DYSGEUSIA [None]
  - ELEVATED MOOD [None]
  - EXPIRED DRUG ADMINISTERED [None]
  - INTENTIONAL DRUG MISUSE [None]
  - NAUSEA [None]
